FAERS Safety Report 18324261 (Version 1)
Quarter: 2020Q3

REPORT INFORMATION
  Report Type: Spontaneous
  Country: US (occurrence: US)
  Receive Date: 20200929
  Receipt Date: 20200929
  Transmission Date: 20201103
  Serious: No
  Sender: FDA-Public Use
  Company Number: None

PATIENT
  Sex: Female
  Weight: 136.9 kg

DRUGS (22)
  1. FLORASTOR [Concomitant]
     Active Substance: SACCHAROMYCES CEREVISIAE
  2. MUPIROCIN. [Concomitant]
     Active Substance: MUPIROCIN
  3. ARIPIPRAZOLE. [Concomitant]
     Active Substance: ARIPIPRAZOLE
  4. DIPHENOXYLATE?ATROPINE [Concomitant]
     Active Substance: ATROPINE\DIPHENOXYLATE
  5. LISINOPRIL. [Concomitant]
     Active Substance: LISINOPRIL
  6. LORAZEPAM. [Concomitant]
     Active Substance: LORAZEPAM
  7. FUROSEMIDE. [Concomitant]
     Active Substance: FUROSEMIDE
  8. RANITIDINE HCL [Concomitant]
     Active Substance: RANITIDINE HYDROCHLORIDE
  9. MEKTOVI [Suspect]
     Active Substance: BINIMETINIB
     Indication: SKIN CANCER
     Route: 048
     Dates: start: 20181019, end: 20200929
  10. LEVOTHYROXINE SODIUM. [Concomitant]
     Active Substance: LEVOTHYROXINE SODIUM
  11. LANTUS [Concomitant]
     Active Substance: INSULIN GLARGINE
  12. OMEPRAZOLE. [Concomitant]
     Active Substance: OMEPRAZOLE
  13. GLUCAGEN HYPOKIT [Concomitant]
     Active Substance: GLUCAGON HYDROCHLORIDE
  14. METAMUCIL MULTIHEALTH FIBER [Concomitant]
  15. NYSTATIN. [Concomitant]
     Active Substance: NYSTATIN
  16. MULTIVITAMIN ADULTS [Concomitant]
  17. SAVAYSA [Concomitant]
     Active Substance: EDOXABAN TOSYLATE
  18. SERTRALINE HCL [Concomitant]
     Active Substance: SERTRALINE HYDROCHLORIDE
  19. TOPIRAMATE. [Concomitant]
     Active Substance: TOPIRAMATE
  20. BRAFTOVI [Suspect]
     Active Substance: ENCORAFENIB
     Indication: SKIN CANCER
     Route: 048
     Dates: start: 20181019, end: 20200929
  21. HUMALOG [Concomitant]
     Active Substance: INSULIN LISPRO
  22. REGLAN [Concomitant]
     Active Substance: METOCLOPRAMIDE HYDROCHLORIDE

REACTIONS (2)
  - Disease progression [None]
  - Bone neoplasm [None]
